FAERS Safety Report 4555107-5 (Version None)
Quarter: 2005Q1

REPORT INFORMATION
  Report Type: 
  Country: None (occurrence: None)
  Receive Date: 20041228
  Receipt Date: 20041008
  Transmission Date: 20050727
  Serious: Yes (Other)
  Sender: FDA-Public Use
  Company Number: PHEH2004US10897

PATIENT
  Age: 77 Year
  Sex: Female
  Weight: 84.4 kg

DRUGS (2)
  1. AREDIA [Suspect]
     Dates: start: 19951001
  2. ZOMETA [Suspect]
     Indication: METASTASES TO BONE
     Dosage: 4MG
     Dates: end: 20040504

REACTIONS (4)
  - DENTAL OPERATION [None]
  - MASTICATION DISORDER [None]
  - OSTEONECROSIS [None]
  - PAIN [None]
